FAERS Safety Report 24575572 (Version 2)
Quarter: 2025Q1

REPORT INFORMATION
  Report Type: Other
  Country: US (occurrence: US)
  Receive Date: 20241104
  Receipt Date: 20250218
  Transmission Date: 20250409
  Serious: No
  Sender: TRAVERE THERAPEUTICS
  Company Number: US-TRAVERE-2024TVT01053

PATIENT
  Age: 62 Year
  Sex: Male

DRUGS (2)
  1. FILSPARI [Suspect]
     Active Substance: SPARSENTAN
     Indication: IgA nephropathy
     Route: 048
     Dates: start: 202410
  2. FILSPARI [Suspect]
     Active Substance: SPARSENTAN
     Route: 048

REACTIONS (5)
  - Chromaturia [Unknown]
  - Influenza [Unknown]
  - Gastroenteritis viral [Unknown]
  - Dizziness [None]
  - Blood creatinine decreased [Unknown]

NARRATIVE: CASE EVENT DATE: 20241201
